FAERS Safety Report 8849736 (Version 1)
Quarter: 2012Q4

REPORT INFORMATION
  Report Type: 
  Country: AT (occurrence: AT)
  Receive Date: 20121019
  Receipt Date: 20121019
  Transmission Date: 20130627
  Serious: Yes (Hospitalization, Other)
  Sender: FDA-Public Use
  Company Number: AT-ABBOTT-12P-009-0995489-00

PATIENT
  Age: 48 Year
  Sex: Female

DRUGS (3)
  1. DEPAKINE [Suspect]
     Dosage: Daily
     Route: 042
     Dates: start: 20120716, end: 20120720
  2. ABILIFY [Concomitant]
     Indication: PRODUCT USED FOR UNKNOWN INDICATION
     Dates: start: 20120716
  3. LORAZEPAM [Concomitant]
     Indication: PRODUCT USED FOR UNKNOWN INDICATION
     Dates: start: 20120716

REACTIONS (3)
  - Hyperammonaemia [Recovered/Resolved]
  - Delirium [Unknown]
  - Confusional state [Unknown]
